FAERS Safety Report 7552068-1 (Version None)
Quarter: 2011Q2

REPORT INFORMATION
  Report Type: 
  Country: None (occurrence: None)
  Receive Date: 20110616
  Receipt Date: 20110601
  Transmission Date: 20111010
  Serious: Yes (Death)
  Sender: FDA-Public Use
  Company Number: US-JNJFOC-20110606369

PATIENT
  Sex: Male

DRUGS (3)
  1. INFLIXIMAB [Suspect]
     Indication: CROHN'S DISEASE
     Route: 042
  2. ADALIMUMAB [Suspect]
     Indication: CROHN'S DISEASE
     Route: 058
  3. AZATHIOPRINE [Suspect]
     Indication: CROHN'S DISEASE

REACTIONS (6)
  - HEPATOSPLENIC T-CELL LYMPHOMA [None]
  - THROMBOCYTOPENIA [None]
  - DRUG INEFFECTIVE [None]
  - ANAEMIA [None]
  - SEPSIS [None]
  - LEUKOPENIA [None]
